APPROVED DRUG PRODUCT: TIMOLOL MALEATE
Active Ingredient: TIMOLOL MALEATE
Strength: 20MG
Dosage Form/Route: TABLET;ORAL
Application: A072003 | Product #001
Applicant: USL PHARMA INC
Approved: Apr 11, 1989 | RLD: No | RS: No | Type: DISCN